FAERS Safety Report 9752228 (Version 1)
Quarter: 2013Q4

REPORT INFORMATION
  Report Type: Spontaneous
  Country: US (occurrence: None)
  Receive Date: 20131211
  Receipt Date: 20131211
  Transmission Date: 20140711
  Serious: No
  Sender: FDA-Public Use
  Company Number: None

PATIENT
  Sex: 0

DRUGS (1)
  1. TEMOZOLOMIDE [Suspect]
     Indication: BRAIN NEOPLASM MALIGNANT
     Dosage: 400MG, DAILY PO (5 DAYS ON, 23 DAYS OFF)
     Dates: start: 20130924, end: 20131018

REACTIONS (3)
  - Brain neoplasm [None]
  - Condition aggravated [None]
  - Product substitution issue [None]
